FAERS Safety Report 11317817 (Version 1)
Quarter: 2015Q3

REPORT INFORMATION
  Report Type: Spontaneous
  Country: US (occurrence: US)
  Receive Date: 20150728
  Receipt Date: 20150728
  Transmission Date: 20151125
  Serious: Yes (Hospitalization)
  Sender: FDA-Public Use
  Company Number: US-ELI_LILLY_AND_COMPANY-US201507008203

PATIENT
  Sex: Female

DRUGS (5)
  1. FORTEO [Suspect]
     Active Substance: TERIPARATIDE
     Indication: BONE DENSITY DECREASED
     Dosage: UNK, QD
     Route: 065
     Dates: end: 20150707
  2. LISINOPRIL. [Concomitant]
     Active Substance: LISINOPRIL
  3. DILTIAZEM [Concomitant]
     Active Substance: DILTIAZEM
  4. HYDROCHLOROTHIAZIDE. [Concomitant]
     Active Substance: HYDROCHLOROTHIAZIDE
  5. METRONIDAZOL                       /00012501/ [Concomitant]
     Active Substance: METRONIDAZOLE

REACTIONS (3)
  - Arrhythmia [Unknown]
  - Arthralgia [Unknown]
  - Gastrointestinal disorder [Unknown]
